FAERS Safety Report 16405191 (Version 1)
Quarter: 2019Q2

REPORT INFORMATION
  Report Type: Spontaneous
  Country: NL (occurrence: NL)
  Receive Date: 20190607
  Receipt Date: 20190607
  Transmission Date: 20190711
  Serious: Yes (Hospitalization)
  Sender: FDA-Public Use
  Company Number: NL-TEVA-2019-NL-1058875

PATIENT
  Sex: Female
  Weight: 84 kg

DRUGS (1)
  1. NTROFURANTUINE [Suspect]
     Active Substance: NITROFURANTOIN
     Indication: CYSTITIS
     Dosage: 1X A DAY
     Dates: start: 2017, end: 2017

REACTIONS (1)
  - Anaphylactic shock [Recovered/Resolved]
